FAERS Safety Report 13362528 (Version 1)
Quarter: 2017Q1

REPORT INFORMATION
  Report Type: Spontaneous
  Country: US (occurrence: US)
  Receive Date: 20170322
  Receipt Date: 20170322
  Transmission Date: 20170429
  Serious: Yes (Hospitalization)
  Sender: FDA-Public Use
  Company Number: None

PATIENT
  Age: 47 Year
  Sex: Female

DRUGS (24)
  1. LYRICA [Concomitant]
     Active Substance: PREGABALIN
  2. LISINOPRIL. [Concomitant]
     Active Substance: LISINOPRIL
  3. ASPIRIN. [Concomitant]
     Active Substance: ASPIRIN
  4. TOPIRAMATE. [Concomitant]
     Active Substance: TOPIRAMATE
  5. PROVENTIL [Concomitant]
     Active Substance: ALBUTEROL
  6. AMBIEN [Concomitant]
     Active Substance: ZOLPIDEM TARTRATE
  7. ENBREL [Suspect]
     Active Substance: ETANERCEPT
     Indication: RHEUMATOID ARTHRITIS
     Route: 058
     Dates: start: 20161104
  8. METHOTREXATE. [Concomitant]
     Active Substance: METHOTREXATE
  9. HYDROCHLOROT [Concomitant]
     Active Substance: HYDROCHLOROTHIAZIDE
  10. LOSARTAN. [Concomitant]
     Active Substance: LOSARTAN
  11. TOLTERODINE [Concomitant]
     Active Substance: TOLTERODINE
  12. VITAMIN D3 [Concomitant]
     Active Substance: CHOLECALCIFEROL
  13. CATIA XT [Concomitant]
  14. FOLIC ACID. [Concomitant]
     Active Substance: FOLIC ACID
  15. DULCOLAX NOS [Concomitant]
     Active Substance: BISACODYL OR DOCUSATE SODIUM
  16. MAG OXIDE [Concomitant]
     Active Substance: MAGNESIUM OXIDE
  17. SPIRIVA [Concomitant]
     Active Substance: TIOTROPIUM BROMIDE MONOHYDRATE
  18. METHOCARBAM [Concomitant]
  19. PREVACID [Concomitant]
     Active Substance: LANSOPRAZOLE
  20. ATORVASTATIN [Concomitant]
     Active Substance: ATORVASTATIN
  21. BACLOFEN. [Concomitant]
     Active Substance: BACLOFEN
  22. POTASSIUM [Concomitant]
     Active Substance: POTASSIUM
  23. ETODOLAC. [Concomitant]
     Active Substance: ETODOLAC
  24. ATIVAN [Concomitant]
     Active Substance: LORAZEPAM

REACTIONS (2)
  - Cerebrovascular accident [None]
  - Arterial occlusive disease [None]

NARRATIVE: CASE EVENT DATE: 201703
